FAERS Safety Report 20786749 (Version 1)
Quarter: 2022Q2

REPORT INFORMATION
  Report Type: Spontaneous
  Country: TR (occurrence: TR)
  Receive Date: 20220505
  Receipt Date: 20220505
  Transmission Date: 20220720
  Serious: Yes (Other)
  Sender: FDA-Public Use
  Company Number: TR-AMGEN-TURSP2022073363

PATIENT

DRUGS (3)
  1. ADALIMUMAB [Suspect]
     Active Substance: ADALIMUMAB
     Indication: Behcet^s syndrome
     Dosage: 24 MILLIGRAM/M2, Q2WK
     Route: 065
  2. COLCHICINE [Concomitant]
     Active Substance: COLCHICINE
     Dosage: 0.03-0.06 MILLIGRAM/KG/QD
     Route: 048
  3. HEPARIN [Concomitant]
     Active Substance: HEPARIN SODIUM
     Indication: Thrombosis

REACTIONS (6)
  - Epilepsy [Unknown]
  - Hemiplegia [Unknown]
  - Off label use [Unknown]
  - Enuresis [Unknown]
  - Strabismus [Unknown]
  - Visual impairment [Unknown]
